FAERS Safety Report 23540853 (Version 1)
Quarter: 2024Q1

REPORT INFORMATION
  Report Type: Spontaneous
  Country: US (occurrence: US)
  Receive Date: 20240219
  Receipt Date: 20240219
  Transmission Date: 20240410
  Serious: No
  Sender: FDA-Public Use
  Company Number: US-Stemline Therapeutics, Inc.-2024ST000312

PATIENT
  Age: 58 Year
  Sex: Female

DRUGS (1)
  1. ORSERDU [Suspect]
     Active Substance: ELACESTRANT
     Indication: Product used for unknown indication
     Route: 048
     Dates: start: 20231225

REACTIONS (9)
  - Gait disturbance [Unknown]
  - Bedridden [Unknown]
  - Pyrexia [Unknown]
  - Musculoskeletal discomfort [Unknown]
  - Bone pain [Unknown]
  - Abdominal discomfort [Unknown]
  - Nausea [Unknown]
  - Decreased appetite [Unknown]
  - Hot flush [Unknown]
